FAERS Safety Report 8648092 (Version 2)
Quarter: 2015Q4

REPORT INFORMATION
  Report Type: Report from Study
  Country: US (occurrence: US)
  Receive Date: 20120703
  Receipt Date: 20151007
  Transmission Date: 20160305
  Serious: Yes (Death, Hospitalization)
  Sender: FDA-Public Use
  Company Number: US-AMGEN-USACT2012039866

PATIENT
  Age: 71 Year
  Sex: Female
  Weight: 88 kg

DRUGS (8)
  1. LASIX [Concomitant]
     Active Substance: FUROSEMIDE
  2. PANITUMUMAB [Suspect]
     Active Substance: PANITUMUMAB
     Indication: NON-SMALL CELL LUNG CANCER
     Dosage: 1500 MG, QWK
     Route: 065
     Dates: start: 20120206, end: 20120312
  3. COUMADIN [Concomitant]
     Active Substance: WARFARIN SODIUM
  4. TAXOL [Concomitant]
     Active Substance: PACLITAXEL
     Indication: NON-SMALL CELL LUNG CANCER
     Dosage: 633 MG, QWK
     Dates: start: 20120206, end: 20120312
  5. OXYGEN. [Concomitant]
     Active Substance: OXYGEN
  6. CARBOPLATIN. [Concomitant]
     Active Substance: CARBOPLATIN
     Indication: NON-SMALL CELL LUNG CANCER
     Dosage: 1567 MG, QWK
     Dates: start: 20120206, end: 20120312
  7. LOVENOX [Concomitant]
     Active Substance: ENOXAPARIN SODIUM
  8. PREDNISONE. [Concomitant]
     Active Substance: PREDNISONE

REACTIONS (4)
  - Pneumonitis [Unknown]
  - Respiratory failure [Fatal]
  - Sepsis [Unknown]
  - Pneumonia [Unknown]

NARRATIVE: CASE EVENT DATE: 20120511
